FAERS Safety Report 13953524 (Version 3)
Quarter: 2018Q2

REPORT INFORMATION
  Report Type: Spontaneous
  Country: US (occurrence: US)
  Receive Date: 20170911
  Receipt Date: 20180503
  Transmission Date: 20180711
  Serious: Yes (Hospitalization)
  Sender: FDA-Public Use
  Company Number: US-PFIZER INC-2017386468

PATIENT
  Age: 83 Year
  Sex: Male
  Weight: 63 kg

DRUGS (4)
  1. SUTENT [Suspect]
     Active Substance: SUNITINIB MALATE
     Dosage: 25 MG, 1X/DAY
     Route: 048
     Dates: start: 20170722, end: 2017
  2. SUTENT [Suspect]
     Active Substance: SUNITINIB MALATE
     Dosage: 25 MG, UNK
     Dates: start: 20170917
  3. SUTENT [Suspect]
     Active Substance: SUNITINIB MALATE
     Indication: METASTATIC RENAL CELL CARCINOMA
     Dosage: 25 MG, UNK, FOR 1 WEEK (TOLERATED  IT VERY WELL)
     Dates: start: 20170722, end: 2017
  4. SUTENT [Suspect]
     Active Substance: SUNITINIB MALATE
     Dosage: 50 MG, CYCLIC (50 MG 1 DAILY 2 WEEKS ON 1 WEEK OFF)
     Route: 048
     Dates: start: 20170811, end: 20170825

REACTIONS (11)
  - Neoplasm progression [Not Recovered/Not Resolved]
  - Gingival erythema [Recovered/Resolved]
  - Glossodynia [Recovered/Resolved]
  - Oral pain [Recovered/Resolved]
  - Swelling [Recovered/Resolved]
  - Inflammation [Recovered/Resolved]
  - Tongue erythema [Recovered/Resolved]
  - Oral mucosal erythema [Recovered/Resolved]
  - Drug dose omission [Unknown]
  - Gingival pain [Recovered/Resolved]
  - Fatigue [Recovered/Resolved]

NARRATIVE: CASE EVENT DATE: 2017
